FAERS Safety Report 7660042-X (Version None)
Quarter: 2011Q3

REPORT INFORMATION
  Report Type: 
  Country: None (occurrence: None)
  Receive Date: 20110805
  Receipt Date: 20110801
  Transmission Date: 20111222
  Serious: Yes (Death, Other)
  Sender: FDA-Public Use
  Company Number: US-AMGEN-USASP2011021448

PATIENT
  Age: 83 Year
  Sex: Male
  Weight: 120.2 kg

DRUGS (8)
  1. NPLATE [Suspect]
     Indication: IDIOPATHIC THROMBOCYTOPENIC PURPURA
     Dosage: 1 A?G/KG, UNK
     Dates: start: 20090515, end: 20101213
  2. COUMADIN [Concomitant]
  3. SYNTHROID [Concomitant]
  4. LASIX [Concomitant]
  5. GLYBURIDE [Concomitant]
  6. CORTICOSTEROIDS [Concomitant]
  7. IMMUNOGLOBULINS [Concomitant]
  8. ALLOPURINOL [Concomitant]

REACTIONS (7)
  - PROSTATOMEGALY [None]
  - SINUS DISORDER [None]
  - COLON CANCER METASTATIC [None]
  - PLEURAL EFFUSION [None]
  - THERAPEUTIC RESPONSE DECREASED [None]
  - DEATH [None]
  - DIVERTICULUM INTESTINAL [None]
